FAERS Safety Report 19895950 (Version 2)
Quarter: 2021Q4

REPORT INFORMATION
  Report Type: Spontaneous
  Country: IL (occurrence: IL)
  Receive Date: 20210929
  Receipt Date: 20211007
  Transmission Date: 20220303
  Serious: Yes (Other)
  Sender: FDA-Public Use
  Company Number: IL-SA-SAC20210928001051

PATIENT
  Age: 78 Year
  Sex: Female

DRUGS (1)
  1. DUPIXENT [Suspect]
     Active Substance: DUPILUMAB
     Indication: Chronic rhinosinusitis with nasal polyps
     Dosage: UNK
     Dates: start: 202105

REACTIONS (3)
  - Infective tenosynovitis [Unknown]
  - Peripheral swelling [Unknown]
  - Pain [Unknown]

NARRATIVE: CASE EVENT DATE: 20210101
